FAERS Safety Report 9755835 (Version 1)
Quarter: 2013Q4

REPORT INFORMATION
  Report Type: Spontaneous
  Country: NZ (occurrence: NZ)
  Receive Date: 20131213
  Receipt Date: 20131213
  Transmission Date: 20140711
  Serious: Yes (Other)
  Sender: FDA-Public Use
  Company Number: NZ-PFIZER INC-2013354488

PATIENT
  Age: 49 Year
  Sex: Male

DRUGS (6)
  1. METHYLPREDNISOLONE [Suspect]
     Indication: TRANSPLANT REJECTION
     Dosage: UNK
  2. THYMOGLOBULINE [Suspect]
     Indication: TRANSPLANT REJECTION
     Dosage: UNK
  3. TACROLIMUS [Suspect]
     Indication: TRANSPLANT REJECTION
     Dosage: UNK
  4. CYCLOSPORIN [Concomitant]
     Indication: IMMUNOSUPPRESSION
     Dosage: UNK
  5. MYCOPHENOLATE MOFETIL [Concomitant]
     Indication: IMMUNOSUPPRESSION
     Dosage: UNK
  6. PREDNISOLONE [Concomitant]
     Indication: IMMUNOSUPPRESSION
     Dosage: UNK

REACTIONS (1)
  - Diabetes mellitus [Recovering/Resolving]
